FAERS Safety Report 7220742-2 (Version None)
Quarter: 2011Q1

REPORT INFORMATION
  Report Type: 
  Country: None (occurrence: None)
  Receive Date: 20110111
  Receipt Date: 20101228
  Transmission Date: 20110831
  Serious: Yes (Hospitalization)
  Sender: FDA-Public Use
  Company Number: DE-GENENTECH-309765

PATIENT
  Sex: Male

DRUGS (3)
  1. LUCENTIS [Suspect]
     Dosage: UNK
     Route: 031
     Dates: start: 20101103
  2. OLMETEC [Concomitant]
     Indication: PRODUCT USED FOR UNKNOWN INDICATION
  3. LUCENTIS [Suspect]
     Indication: MACULAR DEGENERATION
     Dosage: UNK
     Route: 031
     Dates: start: 20101008

REACTIONS (7)
  - DIZZINESS [None]
  - MALAISE [None]
  - BLOOD PRESSURE FLUCTUATION [None]
  - HYPOAESTHESIA [None]
  - NAUSEA [None]
  - FATIGUE [None]
  - FEELING ABNORMAL [None]
